FAERS Safety Report 8010597-0 (Version None)
Quarter: 2011Q4

REPORT INFORMATION
  Report Type: 
  Country: None (occurrence: None)
  Receive Date: 20111228
  Receipt Date: 20111222
  Transmission Date: 20120403
  Serious: Yes (Other)
  Sender: FDA-Public Use
  Company Number: PHHY2011VN108552

PATIENT
  Sex: Female
  Weight: 40 kg

DRUGS (6)
  1. MAGNE B6 [Concomitant]
     Dosage: UNK UKN, UNK
     Dates: start: 20111114, end: 20111128
  2. TASIGNA [Suspect]
     Indication: CHRONIC MYELOID LEUKAEMIA
     Dosage: 800 MG DAILY
     Route: 048
     Dates: start: 20111114, end: 20111128
  3. ONDANSETRON [Concomitant]
     Indication: VOMITING
     Dosage: UNK UKN, UNK
     Dates: start: 20111114, end: 20111128
  4. TASIGNA [Suspect]
     Dosage: 800 MG, DAILY
     Route: 048
     Dates: start: 20111205, end: 20111205
  5. PREDNISONE [Concomitant]
     Indication: ANTIALLERGIC THERAPY
     Dosage: 40 MG, DAILY
     Route: 048
     Dates: start: 20111216
  6. TASIGNA [Suspect]
     Dosage: 800 MG, DAILY
     Route: 048
     Dates: start: 20111216

REACTIONS (1)
  - RASH [None]
